FAERS Safety Report 14934488 (Version 2)
Quarter: 2018Q2

REPORT INFORMATION
  Report Type: Spontaneous
  Country: AR (occurrence: AR)
  Receive Date: 20180524
  Receipt Date: 20180601
  Transmission Date: 20180711
  Serious: Yes (Hospitalization, Other)
  Sender: FDA-Public Use
  Company Number: AR-PFIZER INC-2018210972

PATIENT
  Age: 66 Year
  Sex: Female

DRUGS (1)
  1. SUTENT [Suspect]
     Active Substance: SUNITINIB MALATE
     Indication: METASTATIC RENAL CELL CARCINOMA
     Dosage: 50 MG, CYCLIC (7 DAYS OFF TREATMENT AND 7 DAYS OFF)
     Dates: start: 20180402

REACTIONS (2)
  - Platelet disorder [Recovered/Resolved]
  - Hip fracture [Not Recovered/Not Resolved]

NARRATIVE: CASE EVENT DATE: 2018
